FAERS Safety Report 23932809 (Version 1)
Quarter: 2024Q2

REPORT INFORMATION
  Report Type: Spontaneous
  Country: FR (occurrence: FR)
  Receive Date: 20240603
  Receipt Date: 20240603
  Transmission Date: 20240716
  Serious: Yes (Hospitalization)
  Sender: FDA-Public Use
  Company Number: FR-ROCHE-3564895

PATIENT
  Age: 42 Year
  Sex: Female

DRUGS (4)
  1. EVEROLIMUS [Interacting]
     Active Substance: EVEROLIMUS
     Indication: Post transplant lymphoproliferative disorder
     Dosage: UNK
     Route: 065
  2. TACROLIMUS [Interacting]
     Active Substance: TACROLIMUS
     Indication: Post transplant lymphoproliferative disorder
     Dosage: UNK
     Route: 065
  3. RITUXIMAB [Interacting]
     Active Substance: RITUXIMAB
     Indication: Post transplant lymphoproliferative disorder
     Dosage: UNK
     Route: 065
  4. OXYGEN [Concomitant]
     Active Substance: OXYGEN
     Dosage: UNK
     Route: 065

REACTIONS (2)
  - COVID-19 [Recovered/Resolved]
  - Drug interaction [Unknown]
